FAERS Safety Report 7110978-3 (Version None)
Quarter: 2010Q4

REPORT INFORMATION
  Report Type: 
  Country: None (occurrence: None)
  Receive Date: 20101118
  Receipt Date: 20091021
  Transmission Date: 20110411
  Serious: No
  Sender: FDA-Public Use
  Company Number: US-TEVA-212959USA

PATIENT
  Sex: Male

DRUGS (2)
  1. ALBUTEROL SULFATE AUTOHALER [Suspect]
     Indication: COUGH
     Dosage: 2 PUFFS EVERY 4 HOURS
     Route: 055
     Dates: start: 20091021, end: 20091021
  2. ALBUTEROL SULFATE AUTOHALER [Suspect]
     Indication: WHEEZING

REACTIONS (1)
  - COUGH [None]
